FAERS Safety Report 10252581 (Version 1)
Quarter: 2014Q2

REPORT INFORMATION
  Report Type: Spontaneous
  Country: GB (occurrence: GB)
  Receive Date: 20140623
  Receipt Date: 20140623
  Transmission Date: 20141212
  Serious: Yes (Other)
  Sender: FDA-Public Use
  Company Number: GB-TEVA-488920ISR

PATIENT
  Sex: Female

DRUGS (11)
  1. VERAPAMIL [Suspect]
     Dosage: 240 MILLIGRAM DAILY;
     Dates: end: 201406
  2. VERAPAMIL [Suspect]
     Dosage: 480 MILLIGRAM DAILY;
     Dates: start: 201406, end: 201406
  3. LANSOPRAZOLE [Concomitant]
     Route: 065
  4. SALBUTAMOL [Concomitant]
     Route: 055
  5. LORAN [Concomitant]
     Route: 065
  6. CITALOPRAM [Concomitant]
     Dosage: 30 MILLIGRAM DAILY;
     Route: 065
  7. SERETIDE [Concomitant]
     Dosage: EVOHALER
     Route: 055
  8. FUROSEMIDE [Concomitant]
     Route: 065
  9. MOVICOL [Concomitant]
     Route: 065
  10. SPIRIVA HANDIHALER [Concomitant]
     Route: 055
  11. WARFARIN [Concomitant]
     Route: 065

REACTIONS (3)
  - Lower respiratory tract infection [Unknown]
  - Fatigue [Unknown]
  - Incorrect dosage administered [Unknown]
